FAERS Safety Report 20852986 (Version 1)
Quarter: 2022Q2

REPORT INFORMATION
  Report Type: Spontaneous
  Country: US (occurrence: US)
  Receive Date: 20220520
  Receipt Date: 20220520
  Transmission Date: 20220720
  Serious: Yes (Hospitalization, Other)
  Sender: FDA-Public Use
  Company Number: US-CIPLA LTD.-2022US03182

PATIENT

DRUGS (3)
  1. CYCLOBENZAPRINE [Interacting]
     Active Substance: CYCLOBENZAPRINE
     Indication: Back pain
     Dosage: UNK, PRN (AS NEEDED)
     Route: 065
  2. METHIMAZOLE [Interacting]
     Active Substance: METHIMAZOLE
     Indication: Hyperthyroidism
     Dosage: UNK
     Route: 065
  3. ATENOLOL [Interacting]
     Active Substance: ATENOLOL
     Indication: Hyperthyroidism
     Dosage: UNK
     Route: 065

REACTIONS (3)
  - Thyrotoxic cardiomyopathy [Recovering/Resolving]
  - Thyrotoxic crisis [Recovering/Resolving]
  - Drug interaction [Unknown]
